FAERS Safety Report 7575425-6 (Version None)
Quarter: 2011Q2

REPORT INFORMATION
  Report Type: 
  Country: None (occurrence: None)
  Receive Date: 20110627
  Receipt Date: 20110620
  Transmission Date: 20111010
  Serious: Yes (Hospitalization)
  Sender: FDA-Public Use
  Company Number: US-AMGEN-USACT2011031471

PATIENT
  Age: 69 Year
  Sex: Female

DRUGS (4)
  1. GEMCITABINE [Concomitant]
     Dosage: 900 MG/M2, UNK
     Route: 042
     Dates: start: 20100922
  2. DOCETAXEL [Concomitant]
     Dosage: 75 MG/M2, UNK
     Route: 042
     Dates: start: 20100922
  3. FILGRASTIM [Suspect]
     Indication: UTERINE LEIOMYOSARCOMA
     Dosage: 150 A?G/M2, UNK
     Route: 058
     Dates: start: 20100922
  4. BEVACIZUMAB [Concomitant]
     Indication: UTERINE LEIOMYOSARCOMA
     Dosage: UNK
     Route: 042
     Dates: start: 20100922

REACTIONS (5)
  - DEVICE RELATED INFECTION [None]
  - SOFT TISSUE INFECTION [None]
  - PYREXIA [None]
  - LUNG INFECTION [None]
  - FRACTURE [None]
